FAERS Safety Report 14631231 (Version 1)
Quarter: 2018Q1

REPORT INFORMATION
  Report Type: Spontaneous
  Country: US (occurrence: US)
  Receive Date: 20180313
  Receipt Date: 20180313
  Transmission Date: 20180509
  Serious: Yes (Other)
  Sender: FDA-Public Use
  Company Number: US-HORIZON-PEN-0170-2018

PATIENT
  Sex: Female

DRUGS (1)
  1. PENNSAID [Suspect]
     Active Substance: DICLOFENAC SODIUM
     Indication: KNEE OPERATION
     Dosage: RUB ON A LITTLE BIT
     Route: 061

REACTIONS (3)
  - Hypersensitivity [Recovered/Resolved with Sequelae]
  - Cardiac disorder [Unknown]
  - Off label use [Unknown]
